FAERS Safety Report 5581509-4 (Version None)
Quarter: 2008Q1

REPORT INFORMATION
  Report Type: 
  Country: None (occurrence: None)
  Receive Date: 20080104
  Receipt Date: 20071228
  Transmission Date: 20080703
  Serious: Yes (Hospitalization)
  Sender: FDA-Public Use
  Company Number: US-BAYER-200717306NA

PATIENT
  Age: 62 Year
  Sex: Female
  Weight: 54 kg

DRUGS (5)
  1. BETASERON [Suspect]
     Indication: RELAPSING-REMITTING MULTIPLE SCLEROSIS
     Dosage: TOTAL DAILY DOSE: 8 MIU
     Route: 058
     Dates: start: 19860101
  2. SIMVASTATIN [Concomitant]
     Dosage: TOTAL DAILY DOSE: 20 MG
  3. VIVELLE-DOT [Concomitant]
  4. ACETAMINOPHEN [Concomitant]
  5. VITAMINS [Concomitant]

REACTIONS (4)
  - INJECTION SITE INFECTION [None]
  - INJECTION SITE INFLAMMATION [None]
  - PAIN [None]
  - PRURITUS [None]
